FAERS Safety Report 5381516-0 (Version None)
Quarter: 2007Q3

REPORT INFORMATION
  Report Type: 
  Country: None (occurrence: None)
  Receive Date: 20070703
  Receipt Date: 20070703
  Transmission Date: 20080115
  Serious: Yes (Life-Threatening, Other)
  Sender: FDA-Public Use
  Company Number: None

PATIENT
  Sex: Female
  Weight: 142.8831 kg

DRUGS (1)
  1. LISINOPRIL [Suspect]
     Indication: HYPERTENSION
     Dosage: 1 PILL 2 TIMES A DAY PO
     Route: 048
     Dates: start: 20070625, end: 20070625

REACTIONS (13)
  - BLOOD PRESSURE INCREASED [None]
  - BURNING SENSATION [None]
  - CARDIAC DISORDER [None]
  - CHEST PAIN [None]
  - DIZZINESS [None]
  - EMOTIONAL DISORDER [None]
  - FLUSHING [None]
  - HYPERSENSITIVITY [None]
  - ILL-DEFINED DISORDER [None]
  - PALPITATIONS [None]
  - PHARMACEUTICAL PRODUCT COMPLAINT [None]
  - PHARYNGITIS [None]
  - TREMOR [None]
